FAERS Safety Report 17600065 (Version 1)
Quarter: 2020Q1

REPORT INFORMATION
  Report Type: Spontaneous
  Country: NL (occurrence: GB)
  Receive Date: 20200330
  Receipt Date: 20200330
  Transmission Date: 20200409
  Serious: Yes (Other)
  Sender: FDA-Public Use
  Company Number: GB-FRESENIUS KABI-FK202002939

PATIENT
  Age: 55 Year
  Sex: Male

DRUGS (13)
  1. CODEINE [Concomitant]
     Active Substance: CODEINE
     Indication: PRODUCT USED FOR UNKNOWN INDICATION
     Dosage: 240 MG DAILY
     Route: 048
     Dates: start: 20191113
  2. CEFUROXIME. [Concomitant]
     Active Substance: CEFUROXIME
     Indication: PRODUCT USED FOR UNKNOWN INDICATION
     Dosage: 750 MG / 8 HOURS (CUMULATIVE DOSE 2250 MG)
     Route: 042
     Dates: start: 20191114, end: 20191116
  3. ZOPICLONE [Concomitant]
     Active Substance: ZOPICLONE
     Indication: PRODUCT USED FOR UNKNOWN INDICATION
     Dosage: 7.5 MG PER DAY AT NIGHT.
     Route: 048
     Dates: start: 20191113
  4. METRONIDAZOLE. [Concomitant]
     Active Substance: METRONIDAZOLE
     Indication: PRODUCT USED FOR UNKNOWN INDICATION
     Dosage: NEAT 100 ML; 1500 MG DAILY (CUMULATIVE DOSE 1500 MG)
     Route: 042
     Dates: start: 20191114, end: 20191116
  5. PARACETAMOL [Concomitant]
     Active Substance: ACETAMINOPHEN
     Indication: PRODUCT USED FOR UNKNOWN INDICATION
     Dosage: 4 G DAILY
     Route: 048
     Dates: start: 20191113
  6. SALBUTAMOL [Concomitant]
     Active Substance: ALBUTEROL
     Indication: PRODUCT USED FOR UNKNOWN INDICATION
     Dosage: 800 MCG DAILY (COMULATIVE DOSE 800 MCG); CFC FREE
     Route: 055
     Dates: start: 20191114
  7. FLUCLOXACILLIN (MANUFACTURER UNKNOWN) [Suspect]
     Active Substance: FLUCLOXACILLIN
     Dosage: 8000 MG DAILY
     Route: 042
     Dates: start: 20191114, end: 20191114
  8. SODIUM CHLORIDE (MANUFACTURER UNKNOWN) [Suspect]
     Active Substance: SODIUM CHLORIDE
     Dosage: 100 MG DAILY (COMULATIVE DOSE 400 MG)
     Route: 042
     Dates: start: 20191117
  9. FLUCLOXACILLIN (MANUFACTURER UNKNOWN) [Suspect]
     Active Substance: FLUCLOXACILLIN
     Indication: PRODUCT USED FOR UNKNOWN INDICATION
     Dosage: 8000 MG DAILY
     Route: 042
     Dates: start: 20191113, end: 20191113
  10. DALTEPARIN [Concomitant]
     Active Substance: DALTEPARIN
     Indication: PRODUCT USED FOR UNKNOWN INDICATION
     Dosage: 5000 IU DAILY
     Route: 058
     Dates: start: 20191114
  11. SODIUM CHLORIDE (MANUFACTURER UNKNOWN) [Suspect]
     Active Substance: SODIUM CHLORIDE
     Indication: PRODUCT USED FOR UNKNOWN INDICATION
     Dosage: 8000 MG DAILY
     Route: 042
     Dates: start: 20191114, end: 20191114
  12. SODIUM CHLORIDE (MANUFACTURER UNKNOWN) [Suspect]
     Active Substance: SODIUM CHLORIDE
     Dosage: 8000 MG DAILY
     Route: 042
     Dates: start: 20191113, end: 20191113
  13. TIGECYCLINE. [Concomitant]
     Active Substance: TIGECYCLINE
     Indication: PRODUCT USED FOR UNKNOWN INDICATION
     Dosage: 100 MG DAILY
     Route: 042
     Dates: start: 20191117

REACTIONS (1)
  - Drug intolerance [Recovered/Resolved]

NARRATIVE: CASE EVENT DATE: 20191113
